FAERS Safety Report 15156008 (Version 3)
Quarter: 2018Q4

REPORT INFORMATION
  Report Type: Report from Study
  Country: BR (occurrence: BR)
  Receive Date: 20180717
  Receipt Date: 20181128
  Transmission Date: 20190204
  Serious: Yes (Other)
  Sender: FDA-Public Use
  Company Number: PHHY2018BR045143

PATIENT
  Age: 63 Year
  Sex: Male
  Weight: 78 kg

DRUGS (1)
  1. ACLASTA [Suspect]
     Active Substance: ZOLEDRONIC ACID
     Indication: OSTEOPOROSIS
     Dosage: 1 DF, Q12MO
     Route: 042
     Dates: start: 2017, end: 2017

REACTIONS (5)
  - Incisional hernia [Unknown]
  - Limb discomfort [Not Recovered/Not Resolved]
  - Bone disorder [Unknown]
  - Gastrointestinal disorder [Unknown]
  - Bone density increased [Unknown]

NARRATIVE: CASE EVENT DATE: 201807
